FAERS Safety Report 11544636 (Version 1)
Quarter: 2015Q3

REPORT INFORMATION
  Report Type: Spontaneous
  Country: US (occurrence: None)
  Receive Date: 20150923
  Receipt Date: 20150923
  Transmission Date: 20151125
  Serious: Yes (Other)
  Sender: FDA-Public Use
  Company Number: None

PATIENT
  Age: 47 Year
  Sex: Male
  Weight: 53 kg

DRUGS (2)
  1. FORACORT [Concomitant]
  2. TROPICAMIDE. [Suspect]
     Active Substance: TROPICAMIDE

REACTIONS (1)
  - Application site swelling [None]

NARRATIVE: CASE EVENT DATE: 20100209
